FAERS Safety Report 21720794 (Version 1)
Quarter: 2022Q4

REPORT INFORMATION
  Report Type: Spontaneous
  Country: IT (occurrence: IT)
  Receive Date: 20221213
  Receipt Date: 20221213
  Transmission Date: 20230113
  Serious: Yes (Hospitalization)
  Sender: FDA-Public Use
  Company Number: None

PATIENT
  Age: 74 Year
  Sex: Female
  Weight: 69 kg

DRUGS (11)
  1. ONDANSETRON [Suspect]
     Active Substance: ONDANSETRON
     Indication: Product used for unknown indication
     Dosage: 8 MG
     Route: 042
     Dates: start: 20221005, end: 20221005
  2. OXALIPLATIN [Suspect]
     Active Substance: OXALIPLATIN
     Indication: Adenocarcinoma pancreas
     Dosage: 139.4 MG
     Route: 042
     Dates: start: 20221004, end: 20221004
  3. FLUOROURACIL [Suspect]
     Active Substance: FLUOROURACIL
     Indication: Adenocarcinoma pancreas
     Dosage: 656 MG
     Route: 042
     Dates: start: 20221004, end: 20221004
  4. FLUOROURACIL [Suspect]
     Active Substance: FLUOROURACIL
     Dosage: 1968 MG
     Route: 042
     Dates: start: 20221004
  5. FLUOROURACIL [Suspect]
     Active Substance: FLUOROURACIL
     Dosage: 656 MG
     Route: 042
     Dates: start: 20221005, end: 20221005
  6. CHLORPHENIRAMINE MALEATE [Suspect]
     Active Substance: CHLORPHENIRAMINE MALEATE
     Indication: Product used for unknown indication
     Dosage: 10 MG
     Route: 042
     Dates: start: 20221004, end: 20221004
  7. DEXAMETHASONE [Suspect]
     Active Substance: DEXAMETHASONE
     Indication: Product used for unknown indication
     Dosage: 8 MG
     Route: 042
     Dates: start: 20221004, end: 20221004
  8. DEXAMETHASONE [Suspect]
     Active Substance: DEXAMETHASONE
     Dosage: 4 MG
     Route: 042
     Dates: start: 20221005, end: 20221005
  9. LEVOLEUCOVORIN CALCIUM [Suspect]
     Active Substance: LEVOLEUCOVORIN CALCIUM
     Indication: Product used for unknown indication
     Dosage: 164 MG
     Route: 042
     Dates: start: 20221004, end: 20221004
  10. LEVOLEUCOVORIN CALCIUM [Suspect]
     Active Substance: LEVOLEUCOVORIN CALCIUM
     Dosage: 164 MG
     Route: 042
     Dates: start: 20221005, end: 20221005
  11. METFORMIN HYDROCHLORIDE [Concomitant]
     Active Substance: METFORMIN HYDROCHLORIDE
     Indication: Product used for unknown indication
     Dosage: 850 MG, Q8H
     Route: 065

REACTIONS (3)
  - Abdominal pain [Recovered/Resolved]
  - Diverticulitis [Recovered/Resolved]
  - Diarrhoea haemorrhagic [Recovered/Resolved]

NARRATIVE: CASE EVENT DATE: 20221009
